FAERS Safety Report 7466492-9 (Version None)
Quarter: 2011Q2

REPORT INFORMATION
  Report Type: 
  Country: None (occurrence: None)
  Receive Date: 20110509
  Receipt Date: 20100817
  Transmission Date: 20111010
  Serious: No
  Sender: FDA-Public Use
  Company Number: US-ALEXION-A201000842

PATIENT
  Sex: Female

DRUGS (12)
  1. BONIVA [Concomitant]
     Dosage: EVERY MONTH
  2. SOLIRIS [Suspect]
     Indication: PAROXYSMAL NOCTURNAL HAEMOGLOBINURIA
     Dosage: 900 MG, Q2W
     Route: 042
     Dates: start: 20081001
  3. POTASSIUM [Concomitant]
     Dosage: UNK
     Route: 048
  4. CORTISONE [Concomitant]
     Dosage: UNK
     Route: 048
  5. PREMARIN [Concomitant]
     Dosage: UNK
     Route: 048
  6. CARDIZEM [Concomitant]
     Dosage: 180 MG, QD
     Route: 048
  7. LISINOPRIL [Concomitant]
     Dosage: 20 MG, QD
     Route: 048
  8. PREDNISONE [Concomitant]
     Dosage: 2.5 MG, QD
     Route: 048
  9. CALTRATE                           /00108001/ [Concomitant]
     Route: 048
  10. COLESTID [Concomitant]
     Dosage: UNK
     Route: 048
  11. DARBOCEPT [Concomitant]
     Dosage: UNK
  12. FOLIC ACID [Concomitant]
     Dosage: UNK
     Route: 048

REACTIONS (4)
  - PULMONARY HYPERTENSION [None]
  - AORTIC STENOSIS [None]
  - HAEMOGLOBIN DECREASED [None]
  - MALAISE [None]
